FAERS Safety Report 7724400-7 (Version None)
Quarter: 2011Q3

REPORT INFORMATION
  Report Type: 
  Country: None (occurrence: None)
  Receive Date: 20110901
  Receipt Date: 20110823
  Transmission Date: 20111222
  Serious: Yes (Hospitalization, Other)
  Sender: FDA-Public Use
  Company Number: US-PFIZER INC-US-WYE-H17496110

PATIENT
  Sex: Female
  Weight: 69.4 kg

DRUGS (18)
  1. BAPINEUZUMAB [Suspect]
     Dosage: BLINDED DOSE
     Route: 051
     Dates: start: 20100909, end: 20100909
  2. AMITRIPTYLINE [Concomitant]
     Dosage: 50 MG, 1X/DAY
  3. TEMAZEPAM [Concomitant]
     Dosage: 30 MG, UNK
     Route: 048
     Dates: start: 20030101
  4. BAPINEUZUMAB [Suspect]
     Indication: DEMENTIA ALZHEIMER'S TYPE
     Dosage: BLINDED DOSE
     Route: 051
     Dates: start: 20100318, end: 20100318
  5. BAPINEUZUMAB [Suspect]
     Dosage: BLINDED DOSE
     Dates: start: 20101209, end: 20101209
  6. MEDROL [Suspect]
     Indication: ANTIINFLAMMATORY THERAPY
     Dosage: UNK
     Dates: start: 20100727, end: 20100728
  7. MEDROL [Suspect]
     Indication: ANTIALLERGIC THERAPY
  8. PREDNISONE [Suspect]
     Indication: INFLAMMATION
     Dosage: UNK
     Route: 030
     Dates: start: 20100727, end: 20100727
  9. WELLBATRIN [Concomitant]
     Dosage: 500 MG, UNK
     Dates: start: 19990101
  10. PREDNISONE [Suspect]
     Indication: ANTIALLERGIC THERAPY
  11. GALANTAMINE HYDROBROMIDE [Concomitant]
     Dosage: 24 MG, UNK
     Route: 048
     Dates: start: 20050101
  12. BIOTIN [Concomitant]
     Dosage: UNKNOWN DOSE ONCE DAILY
     Dates: start: 20071001
  13. MULTI-VITAMINS [Concomitant]
     Dosage: UNK
     Dates: start: 20060101
  14. SEROQUEL [Concomitant]
  15. TOPAMAX [Concomitant]
     Dosage: 15 MG, UNK
     Dates: start: 20010101
  16. BAPINEUZUMAB [Suspect]
     Dosage: BLINDED DOSE
     Route: 051
     Dates: start: 20100610, end: 20100610
  17. LAMICTAL [Concomitant]
     Dosage: UNK
     Dates: start: 20040101
  18. PREMPRO [Concomitant]
     Dosage: UNK
     Route: 048
     Dates: start: 19960101

REACTIONS (1)
  - HALLUCINATION [None]
